FAERS Safety Report 6861857-8 (Version None)
Quarter: 2010Q3

REPORT INFORMATION
  Report Type: 
  Country: None (occurrence: None)
  Receive Date: 20100721
  Receipt Date: 20100715
  Transmission Date: 20110219
  Serious: No
  Sender: FDA-Public Use
  Company Number: US-BIOGENIDEC-2010BI023942

PATIENT
  Age: 38 Year
  Sex: Female

DRUGS (2)
  1. AVONEX [Suspect]
     Indication: MULTIPLE SCLEROSIS
     Route: 030
     Dates: start: 20100409, end: 20100423
  2. AVONEX [Suspect]
     Route: 030
     Dates: start: 20100430, end: 20100709

REACTIONS (4)
  - BLISTER [None]
  - BURNING SENSATION [None]
  - PRURITUS ALLERGIC [None]
  - SCAB [None]
